FAERS Safety Report 5125294-9 (Version None)
Quarter: 2006Q4

REPORT INFORMATION
  Report Type: 
  Country: None (occurrence: None)
  Receive Date: 20061006
  Receipt Date: 20060925
  Transmission Date: 20070319
  Serious: Yes (Hospitalization)
  Sender: FDA-Public Use
  Company Number: 2006BI011335

PATIENT
  Age: 49 Year
  Sex: Female

DRUGS (13)
  1. AVONEX [Suspect]
     Indication: MULTIPLE SCLEROSIS
     Dosage: 30 UG; QW; IM
     Route: 042
     Dates: start: 20020313, end: 20030801
  2. AVONEX [Suspect]
     Indication: MULTIPLE SCLEROSIS
     Dosage: 30 UG; QW; IM
     Route: 030
     Dates: start: 20030801
  3. LASIX [Concomitant]
  4. PROTONIX [Concomitant]
  5. LEXAPRO [Concomitant]
  6. TRAZODONE HCL [Concomitant]
  7. TENORMIN [Concomitant]
  8. NEURONTIN [Concomitant]
  9. PROVIGIL [Concomitant]
  10. LIPITOR [Concomitant]
  11. MORPHINE [Concomitant]
  12. ZANAFLEX [Concomitant]
  13. METHADONE [Concomitant]

REACTIONS (3)
  - CELLULITIS [None]
  - DERMATITIS [None]
  - VENOUS STASIS [None]
